FAERS Safety Report 19056490 (Version 1)
Quarter: 2021Q1

REPORT INFORMATION
  Report Type: Report from Study
  Country: DE (occurrence: DE)
  Receive Date: 20210325
  Receipt Date: 20210325
  Transmission Date: 20210420
  Serious: Yes (Other)
  Sender: FDA-Public Use
  Company Number: NVSC2021DE063484

PATIENT
  Sex: Female
  Weight: 73 kg

DRUGS (5)
  1. REVOLADE [Suspect]
     Active Substance: ELTROMBOPAG OLAMINE
     Indication: IMMUNE THROMBOCYTOPENIA
     Dosage: 50 MG, QD
     Route: 048
     Dates: start: 20200612, end: 20200921
  2. REVOLADE [Suspect]
     Active Substance: ELTROMBOPAG OLAMINE
     Dosage: 25 MG, EVERY OTHER DAY
     Route: 048
     Dates: start: 20210209
  3. REVOLADE [Suspect]
     Active Substance: ELTROMBOPAG OLAMINE
     Dosage: 25 MG, QD
     Route: 048
     Dates: start: 20200922, end: 20210208
  4. L?THYROXINE [Concomitant]
     Active Substance: LEVOTHYROXINE
     Dosage: 50 UG (Q2D)
     Route: 048
     Dates: start: 20201211
  5. L?THYROXINE [Concomitant]
     Active Substance: LEVOTHYROXINE
     Indication: IMMUNE THROMBOCYTOPENIA
     Dosage: 125 UG, QD (70+50)
     Route: 048
     Dates: start: 20201119, end: 20201210

REACTIONS (1)
  - Polyneuropathy [Recovered/Resolved]

NARRATIVE: CASE EVENT DATE: 20201228
